FAERS Safety Report 5792029-6 (Version None)
Quarter: 2008Q2

REPORT INFORMATION
  Report Type: 
  Country: None (occurrence: None)
  Receive Date: 20080626
  Receipt Date: 20080612
  Transmission Date: 20081010
  Serious: Yes (Other)
  Sender: FDA-Public Use
  Company Number: PHBS2008US04875

PATIENT
  Age: 85 Year
  Sex: Female

DRUGS (7)
  1. AREDIA [Suspect]
     Indication: BREAST CANCER METASTATIC
     Dosage: 90 MG, QMO
     Route: 042
  2. ARIMIDEX [Concomitant]
  3. MEGACE [Concomitant]
  4. XALATAN [Concomitant]
  5. COSOPT [Concomitant]
  6. PROCRIT [Concomitant]
  7. DIOVAN [Concomitant]

REACTIONS (14)
  - ABSCESS ORAL [None]
  - BACTERIAL INFECTION [None]
  - BONE DEBRIDEMENT [None]
  - BONE DISORDER [None]
  - BONE EROSION [None]
  - BONE PAIN [None]
  - ESCHERICHIA INFECTION [None]
  - GINGIVAL ERYTHEMA [None]
  - ORAL PAIN [None]
  - OSTEOMYELITIS [None]
  - OSTEONECROSIS [None]
  - PEPTOSTREPTOCOCCUS INFECTION [None]
  - SURGERY [None]
  - TOOTH EXTRACTION [None]
